FAERS Safety Report 8236652-8 (Version None)
Quarter: 2012Q1

REPORT INFORMATION
  Report Type: 
  Country: None (occurrence: None)
  Receive Date: 20120327
  Receipt Date: 20120321
  Transmission Date: 20120608
  Serious: Yes (Hospitalization)
  Sender: FDA-Public Use
  Company Number: JP-SANOFI-AVENTIS-2010SA033510

PATIENT
  Age: 87 Year
  Sex: Female
  Weight: 31 kg

DRUGS (8)
  1. LANSOPRAZOLE [Concomitant]
     Route: 048
     Dates: start: 20090101
  2. FERROUS CITRATE [Concomitant]
     Indication: ANAEMIA
     Route: 048
     Dates: start: 20090101, end: 20091013
  3. ISOSORBIDE DINITRATE [Concomitant]
     Route: 062
     Dates: start: 20090101
  4. AMARYL [Suspect]
     Indication: TYPE 2 DIABETES MELLITUS
     Route: 048
     Dates: start: 20090301, end: 20091013
  5. HICEE [Concomitant]
     Route: 048
     Dates: start: 20090101, end: 20091013
  6. CONIEL [Concomitant]
     Indication: HYPERTENSION
     Route: 048
     Dates: start: 20090101, end: 20091013
  7. OLMESARTAN MEDOXOMIL [Concomitant]
     Indication: HYPERTENSION
     Route: 048
     Dates: start: 20090101
  8. HOKUNALIN [Concomitant]
     Route: 062
     Dates: start: 20090101

REACTIONS (7)
  - CARDIOMEGALY [None]
  - PULMONARY CONGESTION [None]
  - HYPOGLYCAEMIC COMA [None]
  - CHEST DISCOMFORT [None]
  - STRESS CARDIOMYOPATHY [None]
  - ELECTROCARDIOGRAM CHANGE [None]
  - OXYGEN SATURATION DECREASED [None]
